FAERS Safety Report 8087476-6 (Version None)
Quarter: 2012Q1

REPORT INFORMATION
  Report Type: 
  Country: None (occurrence: None)
  Receive Date: 20120128
  Receipt Date: 20110524
  Transmission Date: 20120608
  Serious: No
  Sender: FDA-Public Use
  Company Number: US-ABBOTT-11P-163-0728116-00

PATIENT
  Age: 47 Year
  Sex: Female

DRUGS (2)
  1. UNKNOWN CAPSULE [Concomitant]
     Indication: CROHN'S DISEASE
  2. HUMIRA [Suspect]
     Indication: CROHN'S DISEASE
     Dates: start: 20110328

REACTIONS (2)
  - INJECTION SITE PAIN [None]
  - INJECTION SITE SWELLING [None]
